FAERS Safety Report 9936786 (Version 1)
Quarter: 2014Q1

REPORT INFORMATION
  Report Type: Spontaneous
  Country: US (occurrence: None)
  Receive Date: 20140109
  Receipt Date: 20140109
  Transmission Date: 20141002
  Serious: Yes (Other)
  Sender: FDA-Public Use
  Company Number: 374090

PATIENT
  Age: 21 Year
  Sex: Male

DRUGS (1)
  1. LEVEMIR [Suspect]
     Indication: BLOOD GLUCOSE INCREASED
     Dosage: 20 U, QD, SUBCUTANEOUS?
     Route: 058
     Dates: start: 201301, end: 201301

REACTIONS (2)
  - Drug ineffective [None]
  - Blood glucose increased [None]
